FAERS Safety Report 5158239-6 (Version None)
Quarter: 2006Q4

REPORT INFORMATION
  Report Type: 
  Country: None (occurrence: None)
  Receive Date: 20061128
  Receipt Date: 20060927
  Transmission Date: 20070319
  Serious: Yes (Life-Threatening, Hospitalization, Other)
  Sender: FDA-Public Use
  Company Number: PHBS2006JP15057

PATIENT
  Age: 51 Year
  Sex: Female
  Weight: 81 kg

DRUGS (5)
  1. DEPAS [Concomitant]
     Dosage: 1.5 MG/DAY
     Route: 048
     Dates: start: 19980320
  2. DEPAS [Concomitant]
     Dosage: 0.5 MG/DAY
     Route: 048
     Dates: end: 19980511
  3. WARFARIN SODIUM [Concomitant]
     Dosage: 4 MG/DAY
     Route: 048
     Dates: start: 19980404, end: 19980427
  4. SELBEX [Concomitant]
     Dosage: 150 MG/DAY
     Route: 048
     Dates: start: 19980330
  5. TEGRETOL [Suspect]
     Indication: NEURALGIA
     Dosage: 200 MG/DAY
     Route: 048
     Dates: start: 19980320, end: 20060427

REACTIONS (30)
  - ALANINE AMINOTRANSFERASE INCREASED [None]
  - ASPARTATE AMINOTRANSFERASE INCREASED [None]
  - BACK PAIN [None]
  - BLOOD ALKALINE PHOSPHATASE INCREASED [None]
  - BLOOD LACTATE DEHYDROGENASE INCREASED [None]
  - BLOOD UREA INCREASED [None]
  - C-REACTIVE PROTEIN INCREASED [None]
  - EOSINOPHIL COUNT INCREASED [None]
  - GALLBLADDER DISORDER [None]
  - GAMMA-GLUTAMYLTRANSFERASE INCREASED [None]
  - GENERALISED OEDEMA [None]
  - HAEMATOCRIT DECREASED [None]
  - HAEMOGLOBIN DECREASED [None]
  - HEPATOSPLENOMEGALY [None]
  - HUMAN HERPES VIRUS 6 SEROLOGY POSITIVE [None]
  - HYPERSENSITIVITY [None]
  - LYMPHADENOPATHY [None]
  - LYMPHOCYTE COUNT INCREASED [None]
  - LYMPHOCYTE MORPHOLOGY ABNORMAL [None]
  - MONOCYTE COUNT DECREASED [None]
  - MYALGIA [None]
  - NEUTROPHIL COUNT DECREASED [None]
  - OLIGURIA [None]
  - PLATELET COUNT DECREASED [None]
  - PYREXIA [None]
  - RASH GENERALISED [None]
  - RED BLOOD CELL COUNT DECREASED [None]
  - SKIN TEST POSITIVE [None]
  - THROMBOPHLEBITIS [None]
  - WHITE BLOOD CELL COUNT INCREASED [None]
